FAERS Safety Report 7917164-5 (Version None)
Quarter: 2011Q4

REPORT INFORMATION
  Report Type: 
  Country: None (occurrence: None)
  Receive Date: 20111116
  Receipt Date: 20111116
  Transmission Date: 20120403
  Serious: Yes (Death, Hospitalization, Other)
  Sender: FDA-Public Use
  Company Number: KR-BAYER-2011-014680

PATIENT
  Age: 69 Year
  Sex: Male
  Weight: 55.5 kg

DRUGS (12)
  1. SORAFENIB (RAF KINASE INHIBITOR) [Suspect]
     Indication: HEPATIC NEOPLASM MALIGNANT
     Dosage: 200 MG IN AM/400 MG IN PM
     Route: 048
     Dates: start: 20110125, end: 20110131
  2. LOPERAMIDE HCL [Concomitant]
     Indication: DIARRHOEA
     Dosage: 3 MG, UNK
     Route: 048
     Dates: start: 20110201, end: 20110207
  3. 5% DNK [Concomitant]
     Indication: PROPHYLAXIS AGAINST DEHYDRATION
     Dosage: 1 L, UNK
     Route: 042
     Dates: start: 20110208, end: 20110209
  4. URSO 250 [Concomitant]
     Indication: ASPARTATE AMINOTRANSFERASE INCREASED
     Dosage: 300 MG, UNK
     Route: 048
     Dates: start: 20110209
  5. FUROSEMIDE [Concomitant]
     Indication: PROPHYLAXIS
     Dosage: DAILY DOSE 40 MG
     Route: 048
     Dates: start: 20110118, end: 20110125
  6. ALBUMIN NOS [Concomitant]
     Indication: PROPHYLAXIS
     Dosage: DAILY DOSE 200 ML
     Route: 042
     Dates: start: 20110124, end: 20110124
  7. CHLORHEXIDINE GLUCONATE [Concomitant]
     Indication: PROPHYLAXIS
     Dosage: DAILY DOSE 100 ML
     Route: 048
     Dates: start: 20110125
  8. MEK INHIBITOR (DIHYDROXYPROP-DIFLU-METHOXYPHEN-CYCLOPROPA-SULFAMI) [Suspect]
     Indication: HEPATIC NEOPLASM MALIGNANT
     Dosage: 50 MG, BID
     Route: 048
     Dates: start: 20110125, end: 20110131
  9. SPIRONOLACTONE [Concomitant]
     Indication: ASCITES
     Dosage: DAILY DOSE 25 MG
     Route: 048
     Dates: start: 20110118, end: 20110125
  10. METOCLOPRAMIDE [Concomitant]
     Indication: NAUSEA
     Dosage: DAILY DOSE 20 MG
     Route: 048
     Dates: start: 20110127, end: 20110201
  11. AROMIN [Concomitant]
     Indication: ASPARTATE AMINOTRANSFERASE INCREASED
     Dosage: 1 DF, UNK
     Route: 048
     Dates: start: 20110209
  12. ENTECAVIR [Concomitant]
     Indication: VIRAL HEPATITIS CARRIER
     Dosage: DAILY DOSE .5 MG
     Route: 048
     Dates: start: 20091204

REACTIONS (3)
  - HEPATIC NEOPLASM MALIGNANT [None]
  - ASTHENIA [None]
  - HEPATIC FAILURE [None]
